FAERS Safety Report 7942528-3 (Version None)
Quarter: 2011Q4

REPORT INFORMATION
  Report Type: 
  Country: None (occurrence: None)
  Receive Date: 20111128
  Receipt Date: 20111117
  Transmission Date: 20120403
  Serious: Yes (Hospitalization)
  Sender: FDA-Public Use
  Company Number: JP-GLAXOSMITHKLINE-B0762475A

PATIENT
  Sex: Male

DRUGS (5)
  1. LOSARTAN POTASSIUM [Concomitant]
     Dosage: 50MG PER DAY
     Route: 048
  2. HEPSERA [Suspect]
     Indication: HEPATITIS B
     Dosage: 10MG PER DAY
     Route: 048
  3. ETODOLAC [Concomitant]
     Dosage: 400MG PER DAY
     Route: 048
  4. LAMIVUDINE, STAVUDINE, AND NEVIRAPINE [Suspect]
     Indication: HEPATITIS B
     Dosage: 100MG PER DAY
     Route: 048
  5. ANTAGOSTIN [Concomitant]
     Route: 048

REACTIONS (1)
  - FANCONI SYNDROME [None]
